FAERS Safety Report 7740229-8 (Version None)
Quarter: 2011Q3

REPORT INFORMATION
  Report Type: 
  Country: None (occurrence: None)
  Receive Date: 20110909
  Receipt Date: 20110909
  Transmission Date: 20111222
  Serious: Yes (Death, Life-Threatening, Hospitalization, Disabling, Congenital Anomaly, Other)
  Sender: FDA-Public Use
  Company Number: None

PATIENT
  Age: 58 Year
  Sex: Female
  Weight: 54.431 kg

DRUGS (1)
  1. VIVELLE-DOT [Suspect]
     Indication: MENOPAUSE
     Dosage: 0.075 MG/DAY -FULL PATCH-
     Dates: start: 20110901, end: 20110903

REACTIONS (6)
  - SYNCOPE [None]
  - ASTHENIA [None]
  - NO REACTION ON PREVIOUS EXPOSURE TO DRUG [None]
  - DIZZINESS [None]
  - NAUSEA [None]
  - DISORIENTATION [None]
